FAERS Safety Report 10478544 (Version 2)
Quarter: 2014Q4

REPORT INFORMATION
  Report Type: Spontaneous
  Country: US (occurrence: US)
  Receive Date: 20140926
  Receipt Date: 20141021
  Transmission Date: 20150528
  Serious: No
  Sender: FDA-Public Use
  Company Number: US-009507513-1409USA011470

PATIENT
  Age: 37 Year
  Sex: Male
  Weight: 67.57 kg

DRUGS (3)
  1. ASPIRIN. [Concomitant]
     Active Substance: ASPIRIN
     Dosage: LOW DOSE
  2. MAXALT-MLT [Suspect]
     Active Substance: RIZATRIPTAN BENZOATE
     Indication: MIGRAINE
     Dosage: ONE DOSE UPON THE START OF MIGRAINE AND 1 DOSE 2 HOURS LATER
     Route: 048
     Dates: start: 20140912, end: 20140912
  3. MAXALT-MLT [Suspect]
     Active Substance: RIZATRIPTAN BENZOATE
     Dosage: 1 DF, QD
     Route: 048
     Dates: start: 20140913, end: 20140913

REACTIONS (1)
  - Therapeutic response decreased [Not Recovered/Not Resolved]

NARRATIVE: CASE EVENT DATE: 20140912
